FAERS Safety Report 6932914-2 (Version None)
Quarter: 2010Q3

REPORT INFORMATION
  Report Type: 
  Country: None (occurrence: None)
  Receive Date: 20100819
  Receipt Date: 20100809
  Transmission Date: 20110219
  Serious: Yes (Hospitalization)
  Sender: FDA-Public Use
  Company Number: NZ-PURDUE-USA-2010-0045576

PATIENT
  Sex: Male
  Weight: 114.4 kg

DRUGS (13)
  1. BLINDED BTDS PATCH [Suspect]
     Indication: DIABETIC NEUROPATHY
     Dosage: 20 MCG, Q1H
     Dates: start: 20100713
  2. BLINDED PLACEBO TRANSDERMAL PATCH [Suspect]
     Indication: DIABETIC NEUROPATHY
     Dosage: 20 MCG, Q1H
     Dates: start: 20100713
  3. CILAZAPRIL [Concomitant]
     Dosage: UNK
     Dates: start: 20100601
  4. ASPIRIN [Concomitant]
     Dosage: UNK
     Dates: start: 20100622
  5. NITROGLYCERIN [Concomitant]
     Dosage: UNK
     Dates: start: 20100622
  6. OMEPRAZOLE [Concomitant]
     Dosage: UNK
     Dates: start: 20100622
  7. FRUSEMIDE                          /00032601/ [Concomitant]
     Dosage: UNK
     Dates: start: 20100629
  8. METOPROLOL                         /00376902/ [Concomitant]
     Dosage: UNK
     Dates: start: 20100720
  9. SIMVASTATIN [Concomitant]
     Dosage: UNK
     Dates: start: 20100709
  10. PROTAPHANE                         /00030513/ [Concomitant]
     Dosage: UNK
     Dates: start: 20100101
  11. NOVORAPID [Concomitant]
     Dosage: UNK
     Dates: start: 20100101
  12. AMITRIPTYLINE HYDROCHLORIDE [Concomitant]
     Dosage: UNK
     Dates: start: 20100329
  13. METFORMIN HCL [Concomitant]
     Dosage: UNK
     Dates: start: 20100611

REACTIONS (1)
  - ANGINA UNSTABLE [None]
